FAERS Safety Report 7229494-3 (Version None)
Quarter: 2011Q1

REPORT INFORMATION
  Report Type: 
  Country: None (occurrence: None)
  Receive Date: 20110117
  Receipt Date: 20100329
  Transmission Date: 20110831
  Serious: No
  Sender: FDA-Public Use
  Company Number: US-TYCO HEALTHCARE/MALLINCKRODT-T201000944

PATIENT
  Age: 34 Year
  Sex: Female

DRUGS (1)
  1. OPTIRAY 350 [Suspect]
     Indication: COMPUTERISED TOMOGRAM ABDOMEN
     Dosage: 320
     Route: 042
     Dates: start: 20100329, end: 20100329

REACTIONS (4)
  - PAIN IN EXTREMITY [None]
  - HYPOAESTHESIA [None]
  - SWELLING [None]
  - INJECTION SITE EXTRAVASATION [None]
